FAERS Safety Report 13665798 (Version 1)
Quarter: 2017Q2

REPORT INFORMATION
  Report Type: Spontaneous
  Country: GB (occurrence: GB)
  Receive Date: 20170619
  Receipt Date: 20170619
  Transmission Date: 20170830
  Serious: Yes (Other)
  Sender: FDA-Public Use
  Company Number: GB-TEVA-778432ACC

PATIENT
  Sex: Male

DRUGS (3)
  1. ADOPORT (SANDOZ) [Suspect]
     Active Substance: TACROLIMUS
     Dosage: 2 MILLIGRAM DAILY;
     Route: 065
  2. ADOPORT (SANDOZ) [Suspect]
     Active Substance: TACROLIMUS
     Dosage: 1 MILLIGRAM DAILY;
     Route: 065
  3. MYFENAX [Suspect]
     Active Substance: MYCOPHENOLATE MOFETIL
     Dosage: 2000 MILLIGRAM DAILY;
     Route: 065

REACTIONS (1)
  - Renal failure [Unknown]
